FAERS Safety Report 10625504 (Version 1)
Quarter: 2014Q4

REPORT INFORMATION
  Report Type: Other
  Country: US (occurrence: US)
  Receive Date: 20141204
  Receipt Date: 20141204
  Transmission Date: 20150529
  Serious: Yes (Other)
  Sender: FDA-Public Use
  Company Number: US-BRISTOL-MYERS SQUIBB COMPANY-21651088

PATIENT
  Age: 13 Year
  Sex: Female
  Weight: 51.3 kg

DRUGS (4)
  1. ABILIFY [Suspect]
     Active Substance: ARIPIPRAZOLE
     Indication: DEPRESSION
  2. CONCERTA [Interacting]
     Active Substance: METHYLPHENIDATE HYDROCHLORIDE
  3. ABILIFY [Interacting]
     Active Substance: ARIPIPRAZOLE
     Indication: ATTENTION DEFICIT/HYPERACTIVITY DISORDER
  4. CLEVIDIPINE [Suspect]
     Active Substance: CLEVIDIPINE

REACTIONS (2)
  - Drug interaction [Unknown]
  - Drug resistance [Unknown]
